FAERS Safety Report 11018779 (Version 2)
Quarter: 2015Q2

REPORT INFORMATION
  Report Type: Spontaneous
  Country: US (occurrence: US)
  Receive Date: 20150412
  Receipt Date: 20150524
  Transmission Date: 20150821
  Serious: No
  Sender: FDA-Public Use
  Company Number: US-JNJFOC-20140922777

PATIENT
  Age: 56 Year
  Sex: Female

DRUGS (8)
  1. DOCETAXEL. [Suspect]
     Active Substance: DOCETAXEL
     Indication: TRIPLE NEGATIVE BREAST CANCER
     Dosage: OVER 10 MINUTES
     Route: 065
  2. DOXORUBICIN HYDROCHLORIDE. [Suspect]
     Active Substance: DOXORUBICIN HYDROCHLORIDE
     Indication: TRIPLE NEGATIVE BREAST CANCER
     Dosage: OVER 10 MINUTES
     Route: 042
  3. FAMOTIDINE. [Suspect]
     Active Substance: FAMOTIDINE
     Indication: TRIPLE NEGATIVE BREAST CANCER
     Dosage: OVER 10 MINUTES
     Route: 065
  4. PALONOSETRON [Suspect]
     Active Substance: PALONOSETRON
     Indication: TRIPLE NEGATIVE BREAST CANCER
     Dosage: OVER 10 MINUTES
     Route: 065
  5. FAMOTIDINE. [Suspect]
     Active Substance: FAMOTIDINE
     Route: 065
  6. CYCLOPHOSPHAMIDE. [Suspect]
     Active Substance: CYCLOPHOSPHAMIDE
     Indication: TRIPLE NEGATIVE BREAST CANCER
     Dosage: OVER 10 MINUTES
     Route: 042
  7. DEXAMETHASONE. [Suspect]
     Active Substance: DEXAMETHASONE
     Indication: TRIPLE NEGATIVE BREAST CANCER
     Dosage: OVER 10 MINUTES
     Route: 065
  8. DIPHENHYDRAMINE [Suspect]
     Active Substance: DIPHENHYDRAMINE
     Indication: TRIPLE NEGATIVE BREAST CANCER
     Dosage: OVER 10 MINUTES
     Route: 065

REACTIONS (1)
  - Nausea [Unknown]
